FAERS Safety Report 22132510 (Version 1)
Quarter: 2023Q1

REPORT INFORMATION
  Report Type: Spontaneous
  Country: FR (occurrence: FR)
  Receive Date: 20230323
  Receipt Date: 20230323
  Transmission Date: 20230418
  Serious: Yes (Other)
  Sender: FDA-Public Use
  Company Number: FR-ViiV Healthcare Limited-68085

PATIENT
  Age: 58 Year
  Sex: Male

DRUGS (11)
  1. BENSERAZIDE\LEVODOPA [Suspect]
     Active Substance: BENSERAZIDE\LEVODOPA
     Indication: Parkinsonism
     Dosage: 375 MG, QD,125 MG, TID, 3/DAY
     Route: 065
  2. EZETIMIBE [Suspect]
     Active Substance: EZETIMIBE
     Indication: Product used for unknown indication
     Dosage: 10 MG, QD, IN THE EVENING
     Route: 065
  3. ALPRAZOLAM [Suspect]
     Active Substance: ALPRAZOLAM
     Indication: Product used for unknown indication
     Dosage: 0.25 MG, QD, AT BEDTIME
     Route: 065
  4. IRBESARTAN [Suspect]
     Active Substance: IRBESARTAN
     Indication: Product used for unknown indication
     Dosage: 75 MG, QD, IN THE EVENING
     Route: 065
  5. APOMORPHINE HYDROCHLORIDE [Suspect]
     Active Substance: APOMORPHINE HYDROCHLORIDE
     Indication: Parkinsonism
     Dosage: UNK
     Route: 065
  6. PRAVASTATIN [Suspect]
     Active Substance: PRAVASTATIN
     Indication: Product used for unknown indication
     Dosage: 20 MG, QD, IN THE EVENING,
     Route: 065
  7. NEBIVOLOL [Suspect]
     Active Substance: NEBIVOLOL
     Indication: Product used for unknown indication
     Dosage: 5 MG, QD, IN THE MORNING
     Route: 065
  8. EDURANT [Suspect]
     Active Substance: RILPIVIRINE HYDROCHLORIDE
     Indication: HIV infection
     Dosage: UNK
     Route: 048
  9. STALEVO [Suspect]
     Active Substance: CARBIDOPA\ENTACAPONE\LEVODOPA
     Indication: Parkinsonism
     Dosage: UNK,BID, ENTACAPONE 200/LEVODOPA 100/CARBIDOPA25
     Route: 065
  10. VOCABRIA [Suspect]
     Active Substance: CABOTEGRAVIR SODIUM
     Indication: Product used for unknown indication
     Dosage: UNK
     Route: 048
  11. LEVODOPA [Suspect]
     Active Substance: LEVODOPA
     Indication: Parkinsonism
     Dosage: UNK
     Route: 065

REACTIONS (3)
  - Akinesia [Unknown]
  - Therapeutic response shortened [Unknown]
  - Dyskinesia [Not Recovered/Not Resolved]
